FAERS Safety Report 10005518 (Version 2)
Quarter: 2014Q2

REPORT INFORMATION
  Report Type: Spontaneous
  Country: HU (occurrence: HU)
  Receive Date: 20140313
  Receipt Date: 20140512
  Transmission Date: 20141212
  Serious: Yes (Other)
  Sender: FDA-Public Use
  Company Number: HU-RANBAXY-2014R1-78799

PATIENT
  Age: 62 Year
  Sex: Male

DRUGS (5)
  1. PANTOPRAZOL [Suspect]
     Indication: GASTROOESOPHAGEAL REFLUX DISEASE
     Dosage: UNK UNK, BID
     Route: 065
  2. PANTOPRAZOL [Suspect]
     Indication: BARRETT^S OESOPHAGUS
  3. AMOXICILLIN [Concomitant]
     Indication: HELICOBACTER INFECTION
     Dosage: 1000 MG, BID
     Route: 065
  4. CLARITHROMYCIN [Concomitant]
     Indication: HELICOBACTER INFECTION
     Dosage: 500 MG, BID
     Route: 065
  5. PANTOPRAZOLE [Concomitant]
     Indication: HELICOBACTER INFECTION
     Dosage: 40 MG, BID
     Route: 065

REACTIONS (1)
  - Colon adenoma [Recovered/Resolved]
